FAERS Safety Report 14275740 (Version 1)
Quarter: 2017Q4

REPORT INFORMATION
  Report Type: Spontaneous
  Country: FR (occurrence: FR)
  Receive Date: 20171211
  Receipt Date: 20171211
  Transmission Date: 20180321
  Serious: Yes (Hospitalization, Other)
  Sender: FDA-Public Use
  Company Number: FR-OTSUKA-2017_018545

PATIENT
  Sex: Male

DRUGS (4)
  1. ABILIFY [Suspect]
     Active Substance: ARIPIPRAZOLE
     Indication: DEPRESSION
  2. CRESTOR [Concomitant]
     Active Substance: ROSUVASTATIN CALCIUM
     Indication: HYPERCHOLESTEROLAEMIA
     Dosage: UNK
     Route: 048
  3. ABILIFY [Suspect]
     Active Substance: ARIPIPRAZOLE
     Indication: PERSISTENT DEPRESSIVE DISORDER
     Dosage: 10 MG, QD
     Route: 065
     Dates: start: 2007, end: 2008
  4. ABILIFY [Suspect]
     Active Substance: ARIPIPRAZOLE
     Indication: PSYCHOMOTOR HYPERACTIVITY
     Dosage: 30 MG, QD
     Route: 048

REACTIONS (7)
  - Dysphagia [Unknown]
  - Somnolence [Unknown]
  - Product use in unapproved indication [Unknown]
  - Off label use [Unknown]
  - Dyspepsia [Unknown]
  - Hospitalisation [Unknown]
  - Insomnia [Unknown]

NARRATIVE: CASE EVENT DATE: 2009
